FAERS Safety Report 9251713 (Version 1)
Quarter: 2013Q1

REPORT INFORMATION
  Report Type: Spontaneous
  Country: US (occurrence: None)
  Receive Date: 20130305
  Receipt Date: 20130305
  Transmission Date: 20140127
  Serious: Yes (Hospitalization, Other)
  Sender: FDA-Public Use
  Company Number: 163-21880-12081733

PATIENT
  Age: 63 Year
  Sex: Female

DRUGS (9)
  1. REVLIMID (LENALIDOMIDE) (CAPSULES) [Suspect]
     Indication: PLASMA CELL MYELOMA
     Dosage: 02/04/2011 - ONGOING, CAPSULE, 15 MG, 21 IN 21 D, PO
  2. PENICILLIN (PENICILLIN NOS) [Concomitant]
  3. COZAAR (LOSARTAN POTASSIUM) (50 MILLIGRAM, TABLETS) (LOSARTAN POTASSIUM) [Concomitant]
  4. ECOTRIN (ACETYLSALICYLIC ACID) [Concomitant]
  5. SYNTHROID (LEVOTHYROXINE SODIUM) [Concomitant]
  6. MAXIDEX (MAXIDEX) [Concomitant]
  7. K-DUR (POTASSIUM CHLORIDE) [Concomitant]
  8. OMEPRAZOLE (OMEPRAZOLE) [Concomitant]
  9. DEX (DEXTROMETHORPHAN HYDROBROMIDE) [Concomitant]

REACTIONS (1)
  - Deep vein thrombosis [None]
